FAERS Safety Report 7325886-2 (Version None)
Quarter: 2011Q1

REPORT INFORMATION
  Report Type: 
  Country: None (occurrence: None)
  Receive Date: 20110302
  Receipt Date: 20110217
  Transmission Date: 20110831
  Serious: Yes (Hospitalization, Other)
  Sender: FDA-Public Use
  Company Number: PHHY2010AU67141

PATIENT
  Sex: Male

DRUGS (2)
  1. GLEEVEC [Suspect]
     Dosage: 400 MG, UNK
     Dates: end: 20110114
  2. GLEEVEC [Suspect]
     Indication: CHRONIC MYELOID LEUKAEMIA
     Dosage: 400 MG, UNK
     Route: 048
     Dates: start: 20101011

REACTIONS (15)
  - URTICARIA [None]
  - ADAMS-STOKES SYNDROME [None]
  - LOSS OF CONSCIOUSNESS [None]
  - CARDIAC DISORDER [None]
  - HYPOAESTHESIA [None]
  - ASTHENIA [None]
  - VOMITING [None]
  - LUNG DISORDER [None]
  - CONVULSION [None]
  - NAUSEA [None]
  - RASH ERYTHEMATOUS [None]
  - OCULAR HYPERAEMIA [None]
  - RASH [None]
  - FLUID RETENTION [None]
  - RASH MACULO-PAPULAR [None]
